FAERS Safety Report 10352743 (Version 1)
Quarter: 2014Q3

REPORT INFORMATION
  Report Type: Spontaneous
  Country: US (occurrence: US)
  Receive Date: 20140730
  Receipt Date: 20140730
  Transmission Date: 20150326
  Serious: No
  Sender: FDA-Public Use
  Company Number: US-ABBVIE-13P-163-1138644-00

PATIENT
  Age: 63 Year
  Sex: Female
  Weight: 44.95 kg

DRUGS (2)
  1. SYNTHROID [Suspect]
     Active Substance: LEVOTHYROXINE SODIUM
     Dates: start: 201212
  2. SYNTHROID [Suspect]
     Active Substance: LEVOTHYROXINE SODIUM
     Indication: HYPOTHYROIDISM
     Dates: start: 1991, end: 1999

REACTIONS (2)
  - Coeliac disease [Unknown]
  - Nausea [Unknown]

NARRATIVE: CASE EVENT DATE: 201210
